FAERS Safety Report 13612032 (Version 1)
Quarter: 2017Q2

REPORT INFORMATION
  Report Type: Spontaneous
  Country: US (occurrence: US)
  Receive Date: 20170605
  Receipt Date: 20170605
  Transmission Date: 20170830
  Serious: Yes (Hospitalization, Other)
  Sender: FDA-Public Use
  Company Number: None

PATIENT
  Age: 67 Year
  Sex: Male

DRUGS (1)
  1. IBUPROFEN. [Suspect]
     Active Substance: IBUPROFEN
     Dates: start: 20140823

REACTIONS (3)
  - Lip swelling [None]
  - Swelling face [None]
  - Angioedema [None]

NARRATIVE: CASE EVENT DATE: 20160511
